FAERS Safety Report 5819679-2 (Version None)
Quarter: 2008Q3

REPORT INFORMATION
  Report Type: 
  Country: None (occurrence: None)
  Receive Date: 20080723
  Receipt Date: 20080718
  Transmission Date: 20090109
  Serious: Yes (Hospitalization, Other)
  Sender: FDA-Public Use
  Company Number: GR-ABBOTT-08P-066-0464109-00

PATIENT
  Age: 75 Year
  Sex: Male
  Weight: 61 kg

DRUGS (12)
  1. ZEMPLAR [Suspect]
     Indication: HYPERPARATHYROIDISM SECONDARY
     Route: 042
     Dates: start: 20070329, end: 20071206
  2. LISINOPRIL [Concomitant]
     Indication: CORONARY ARTERY DISEASE
     Dosage: 1 X 2
     Route: 048
     Dates: start: 20070801
  3. CLOPIDOGREL [Concomitant]
     Indication: CORONARY ARTERY DISEASE
     Dosage: 1 X 1
     Route: 048
     Dates: start: 20051102
  4. FUROSEMIDE [Concomitant]
     Indication: DIURETIC THERAPY
     Dosage: 1/4 X 1
     Route: 048
     Dates: start: 20060606
  5. LEVOCARNITINE [Concomitant]
     Indication: CORONARY ARTERY DISEASE
     Route: 042
     Dates: start: 20061115
  6. EPOETIN BETA [Concomitant]
     Indication: ANAEMIA
     Dosage: 6000/3 WEEKS
     Route: 042
     Dates: start: 20060606
  7. CARVEDILOL [Concomitant]
     Indication: CORONARY ARTERY DISEASE
     Dosage: 6.25 X 1/2 X 1
     Route: 048
     Dates: start: 20060815, end: 20080501
  8. ATORVASTATIN CALCIUM [Concomitant]
     Indication: DYSLIPIDAEMIA
     Route: 048
     Dates: start: 20060815
  9. SEVELAMER [Concomitant]
     Indication: HYPERPHOSPHATAEMIA
     Dosage: 800; 1 X 3
     Route: 048
     Dates: start: 20070410
  10. OMEPRAZOLE SODIUM [Concomitant]
     Indication: ABDOMINAL PAIN
     Dosage: 1 X 1
     Route: 048
     Dates: start: 20060815
  11. ACETYLSALICYLIC ACID SRT [Concomitant]
     Indication: CORONARY ARTERY DISEASE
     Dosage: 100; 1 X 1
     Route: 048
     Dates: start: 20060801
  12. FOLIC ACID [Concomitant]
     Indication: VITAMIN SUPPLEMENTATION
     Route: 048
     Dates: start: 20061101

REACTIONS (2)
  - ATRIOVENTRICULAR BLOCK [None]
  - SINUS ARREST [None]
